FAERS Safety Report 5164264-1 (Version None)
Quarter: 2006Q4

REPORT INFORMATION
  Report Type: 
  Country: None (occurrence: None)
  Receive Date: 20060918
  Receipt Date: 20060214
  Transmission Date: 20070319
  Serious: Yes (Other)
  Sender: FDA-Public Use
  Company Number: US-JNJFOC-20051005921

PATIENT
  Age: 51 Year
  Sex: Female

DRUGS (3)
  1. TOPAMAX [Suspect]
     Indication: MIGRAINE PROPHYLAXIS
     Dosage: 25 MG, 2 IN 1 DAY, ORAL
     Route: 048
     Dates: start: 20050705
  2. ZIAC (TABLET) BISELEFECT [Concomitant]
  3. CENESTIN (TALBET) ESTROGENS CONJUGATED TABLET [Concomitant]

REACTIONS (5)
  - BLOOD ALBUMIN DECREASED [None]
  - BLOOD ALKALINE PHOSPHATASE DECREASED [None]
  - BLOOD CHLORIDE INCREASED [None]
  - GENERALISED OEDEMA [None]
  - PROTEIN TOTAL DECREASED [None]
